FAERS Safety Report 14436432 (Version 4)
Quarter: 2018Q2

REPORT INFORMATION
  Report Type: Report from Study
  Country: CN (occurrence: CN)
  Receive Date: 20180125
  Receipt Date: 20180606
  Transmission Date: 20180711
  Serious: Yes (Hospitalization)
  Sender: FDA-Public Use
  Company Number: CN-ROCHE-2056622

PATIENT
  Age: 65 Year
  Sex: Female
  Weight: 66 kg

DRUGS (22)
  1. DOCETAXEL. [Suspect]
     Active Substance: DOCETAXEL
     Indication: HER-2 POSITIVE BREAST CANCER
     Dosage: DATE OF MOST RECENT DOSE (124 MG) PRIOR TO SAE: 11/OCT/2017
     Route: 042
     Dates: start: 20170417
  2. TROPISETRON HYDROCHLORIDE [Concomitant]
     Active Substance: TROPISETRON HYDROCHLORIDE
     Indication: PROPHYLAXIS OF NAUSEA AND VOMITING
     Route: 065
     Dates: start: 20170417, end: 20171011
  3. TRASTUZUMAB. [Suspect]
     Active Substance: TRASTUZUMAB
     Indication: HER-2 POSITIVE BREAST CANCER
     Dosage: LOADING DOSE
     Route: 042
     Dates: start: 20170417
  4. MAREN RUNCHANG WAN [Concomitant]
     Route: 065
     Dates: start: 20170806, end: 20171122
  5. VALSARTAN/HYDROCHLOROTHIAZIDE AHCL [Concomitant]
     Indication: HYPERTENSION
     Route: 065
     Dates: start: 20170406
  6. TRASTUZUMAB. [Suspect]
     Active Substance: TRASTUZUMAB
     Dosage: MAINTENANCE DOSE?DATE OF MOST RECENT DOSE (384 MG) PRIOR TO SAE 04/JAN/2018
     Route: 042
  7. BIFID TRIPLE VIABLE [Concomitant]
     Route: 065
     Dates: start: 20170725, end: 20170728
  8. MAREN RUNCHANG WAN [Concomitant]
     Route: 065
     Dates: start: 20170714, end: 20170728
  9. DEXAMETHASONE. [Concomitant]
     Active Substance: DEXAMETHASONE
     Indication: HYPERSENSITIVITY
     Route: 065
     Dates: start: 20170416, end: 20171012
  10. NIFEDIPINE. [Concomitant]
     Active Substance: NIFEDIPINE
     Indication: HYPERTENSION
     Route: 065
     Dates: start: 20170406
  11. INSULIN INJECTION, ISOPHANE [Concomitant]
     Active Substance: INSULIN HUMAN
     Indication: DIABETES MELLITUS
     Route: 065
     Dates: start: 20170410
  12. MAREN RUNCHANG WAN [Concomitant]
     Route: 065
     Dates: start: 20170706
  13. RECOMBINANT HUMAN INSULIN [Concomitant]
     Active Substance: INSULIN HUMAN
     Indication: DIABETES MELLITUS
     Route: 065
     Dates: start: 20170410
  14. PERTUZUMAB. [Suspect]
     Active Substance: PERTUZUMAB
     Dosage: MAINTENANCE DOSE: 420MG/14ML?DATE OF MOST RECENT DOSE OF BLINDED PERTUZUMAB PRIOR TO SAE 04/JAN/2018
     Route: 042
  15. DIPHENHYDRAMINE. [Concomitant]
     Active Substance: DIPHENHYDRAMINE
     Indication: HYPERSENSITIVITY
     Route: 065
     Dates: start: 20170417, end: 20171011
  16. LACTULOSE. [Concomitant]
     Active Substance: LACTULOSE
     Route: 065
     Dates: start: 20170617, end: 20170624
  17. ALOE [Concomitant]
     Active Substance: ALOE
     Route: 065
     Dates: start: 20170705, end: 20170709
  18. PERTUZUMAB. [Suspect]
     Active Substance: PERTUZUMAB
     Indication: HER-2 POSITIVE BREAST CANCER
     Dosage: LOADING DOSE (DOSE AS PER PROTOCOL)
     Route: 042
     Dates: start: 20170417
  19. CIMETIDINE [Concomitant]
     Active Substance: CIMETIDINE
     Route: 065
     Dates: start: 20170417, end: 20171011
  20. BISOPROLOL FUMARATE. [Concomitant]
     Active Substance: BISOPROLOL FUMARATE
     Indication: HYPERTENSION
     Route: 065
     Dates: start: 20170406
  21. LACTULOSE. [Concomitant]
     Active Substance: LACTULOSE
     Indication: CONSTIPATION
     Route: 048
     Dates: start: 20170619, end: 20170624
  22. GLYCERINE [Concomitant]
     Active Substance: GLYCERIN
     Route: 065
     Dates: start: 20170710, end: 20170710

REACTIONS (1)
  - Blood glucose increased [Recovered/Resolved]

NARRATIVE: CASE EVENT DATE: 20170721
